FAERS Safety Report 15165531 (Version 1)
Quarter: 2018Q3

REPORT INFORMATION
  Report Type: Spontaneous
  Country: US (occurrence: US)
  Receive Date: 20180719
  Receipt Date: 20180719
  Transmission Date: 20181010
  Serious: No
  Sender: FDA-Public Use
  Company Number: US-PRINSTON PHARMACEUTICAL INC.-2017PRN00498

PATIENT
  Age: 87 Year
  Sex: Female

DRUGS (2)
  1. LEVOCETIRIZINE [Suspect]
     Active Substance: LEVOCETIRIZINE
     Dosage: 5 MG, 1X/DAY AT NIGHT
  2. DONEPEZIL HYDROCHLORIDE. [Suspect]
     Active Substance: DONEPEZIL HYDROCHLORIDE
     Dosage: 5 MG, 1X/DAY AT NIGHT
     Route: 048
     Dates: start: 20171016

REACTIONS (2)
  - Drug interaction [Unknown]
  - Female sexual arousal disorder [Unknown]

NARRATIVE: CASE EVENT DATE: 20171016
